FAERS Safety Report 10022796 (Version 2)
Quarter: 2014Q1

REPORT INFORMATION
  Report Type: Spontaneous
  Country: AT (occurrence: AT)
  Receive Date: 20140319
  Receipt Date: 20140328
  Transmission Date: 20141002
  Serious: Yes (Life-Threatening, Other)
  Sender: FDA-Public Use
  Company Number: AT-B.I. PHARMACEUTICALS,INC./RIDGEFIELD-2014-BI-12051GD

PATIENT
  Age: 63 Year
  Sex: Female
  Weight: 74 kg

DRUGS (2)
  1. PRADAXA [Suspect]
     Indication: THROMBOSIS PROPHYLAXIS
     Dosage: 110 MG
     Route: 065
  2. PRADAXA [Suspect]
     Dosage: 220 MG
     Route: 065

REACTIONS (14)
  - Necrotising colitis [Unknown]
  - Haematochezia [Recovered/Resolved]
  - Renal failure acute [Unknown]
  - Anuria [Unknown]
  - Sepsis [Unknown]
  - Drug level increased [Unknown]
  - Pelvic haematoma [Unknown]
  - Lumbosacral plexus injury [Unknown]
  - Monoparesis [Unknown]
  - Haemoglobin decreased [Unknown]
  - Abdominal pain [Unknown]
  - Dyspnoea [Unknown]
  - Hypotension [Unknown]
  - Tachycardia [Unknown]
